FAERS Safety Report 9060823 (Version 3)
Quarter: 2013Q2

REPORT INFORMATION
  Report Type: Spontaneous
  Country: US (occurrence: US)
  Receive Date: 20130204
  Receipt Date: 20130423
  Transmission Date: 20140414
  Serious: No
  Sender: FDA-Public Use
  Company Number: US-009507513-1302USA000602

PATIENT
  Age: 18 Year
  Sex: Female
  Weight: 57 kg

DRUGS (1)
  1. IMPLANON [Suspect]
     Indication: CONTRACEPTION
     Dosage: 1 ROD PER EVERY 3 YEARS
     Route: 059
     Dates: start: 20120501

REACTIONS (4)
  - Menstruation delayed [Not Recovered/Not Resolved]
  - Medical device complication [Unknown]
  - Oligomenorrhoea [Not Recovered/Not Resolved]
  - Breast discharge [Recovered/Resolved]
